FAERS Safety Report 7862238-0 (Version None)
Quarter: 2011Q4

REPORT INFORMATION
  Report Type: 
  Country: None (occurrence: None)
  Receive Date: 20111027
  Receipt Date: 20101103
  Transmission Date: 20120403
  Serious: No
  Sender: FDA-Public Use
  Company Number: US-AMGEN-USASP2010003641

PATIENT
  Age: 27 Year
  Sex: Female
  Weight: 93.878 kg

DRUGS (15)
  1. SULFASALAZINE [Concomitant]
  2. DIFLUCAN [Concomitant]
     Dosage: 100 MG, UNK
     Route: 048
  3. OMEPRAZOLE [Concomitant]
     Dosage: 40 MG, UNK
  4. HYDROXYCHLOROQUINE SULFATE [Concomitant]
  5. METHOTREXATE [Concomitant]
  6. FLEXERIL [Concomitant]
     Dosage: 10 MG, UNK
     Route: 048
  7. FLUOXETINE HCL [Concomitant]
     Dosage: 10 MG, UNK
     Route: 048
  8. BACTROBAN [Concomitant]
     Dosage: 2 %, UNK
     Route: 061
  9. NABUMETONE [Concomitant]
     Dosage: 750 MG, UNK
     Route: 048
  10. LEVOTHYROXINE SODIUM [Concomitant]
     Dosage: 100 UNK, UNK
     Route: 048
  11. AMITRIPTYLINE HCL [Concomitant]
     Dosage: 75 MG, UNK
  12. NUVIGIL [Concomitant]
     Dosage: 150 MG, UNK
     Route: 048
  13. ENBREL [Suspect]
     Indication: PRODUCT USED FOR UNKNOWN INDICATION
     Dosage: 50 MG, QWK
  14. DICYCLOMINE [Concomitant]
     Dosage: 10 MG, UNK
  15. CLONAZEPAM [Concomitant]
     Dosage: .5 MG, UNK

REACTIONS (2)
  - INJECTION SITE HAEMATOMA [None]
  - INJECTION SITE PRURITUS [None]
